FAERS Safety Report 20233513 (Version 1)
Quarter: 2021Q4

REPORT INFORMATION
  Report Type: Spontaneous
  Country: GB (occurrence: GB)
  Receive Date: 20211227
  Receipt Date: 20211227
  Transmission Date: 20220303
  Serious: Yes (Other)
  Sender: FDA-Public Use
  Company Number: None

PATIENT
  Age: 71 Year
  Sex: Female
  Weight: 56.24 kg

DRUGS (1)
  1. FLUCONAZOLE [Suspect]
     Active Substance: FLUCONAZOLE
     Indication: Fungal infection
     Dosage: 200 MILLIGRAM DAILY;
     Route: 048
     Dates: start: 20211031, end: 20211113

REACTIONS (3)
  - Eye pain [Recovering/Resolving]
  - Vitreous floaters [Unknown]
  - Headache [Unknown]

NARRATIVE: CASE EVENT DATE: 20211101
